FAERS Safety Report 7631468-5 (Version None)
Quarter: 2011Q3

REPORT INFORMATION
  Report Type: 
  Country: None (occurrence: None)
  Receive Date: 20110725
  Receipt Date: 20110715
  Transmission Date: 20111222
  Serious: Yes (Hospitalization)
  Sender: FDA-Public Use
  Company Number: PHHY2011US63938

PATIENT
  Age: 11 Year
  Sex: Male
  Weight: 34.921 kg

DRUGS (14)
  1. LEVALBUTEROL HCL [Concomitant]
     Dosage: UNK UKN, UNK
  2. MONTELUKAST SODIUM [Concomitant]
     Indication: BRONCHIAL HYPERREACTIVITY
     Dosage: 5 MG, UNK
     Route: 048
  3. L-CARNITINE [Concomitant]
     Dosage: 650 MG, BID
     Route: 048
  4. AZITHROMYCIN [Suspect]
     Indication: ANTIINFLAMMATORY THERAPY
     Dosage: 200 MG, (EVERY OTHER DAY)
     Route: 048
  5. CELECOXIB [Concomitant]
     Dosage: 100 MG/DAY
     Route: 048
  6. ONDANSETRON [Concomitant]
     Route: 048
  7. SENNA SYRUP [Concomitant]
     Route: 048
  8. LANSOPRAZOLE [Concomitant]
     Dosage: 30 MG/DAY
     Route: 048
  9. BUDESONIDE [Concomitant]
  10. CLONAZEPAM [Concomitant]
     Dosage: 1 MG, TID
     Route: 048
  11. VALPROIC ACID [Concomitant]
     Dosage: 250 MG, TID
     Route: 048
  12. FOLIC ACID [Concomitant]
     Dosage: 250 UG, TID
     Route: 048
  13. TIZANIDINE HCL [Concomitant]
     Indication: MUSCLE SPASTICITY
     Dosage: 2 MG, UNK
     Route: 048
  14. HYDROCORTISONE [Concomitant]
     Indication: ADRENAL INSUFFICIENCY
     Dosage: 7.5 MG, BID
     Route: 048

REACTIONS (6)
  - ACTIVATED PARTIAL THROMBOPLASTIN TIME PROLONGED [None]
  - OXYGEN SATURATION DECREASED [None]
  - RESTLESSNESS [None]
  - LIVER FUNCTION TEST ABNORMAL [None]
  - INTERNATIONAL NORMALISED RATIO INCREASED [None]
  - PANCREATITIS [None]
